FAERS Safety Report 12598047 (Version 2)
Quarter: 2016Q3

REPORT INFORMATION
  Report Type: Report from Study
  Country: AR (occurrence: AR)
  Receive Date: 20160727
  Receipt Date: 20160810
  Transmission Date: 20161109
  Serious: Yes (Hospitalization)
  Sender: FDA-Public Use
  Company Number: PHHY2016AR029634

PATIENT
  Age: 84 Year
  Sex: Male

DRUGS (2)
  1. EXJADE [Suspect]
     Active Substance: DEFERASIROX
     Indication: IRON OVERLOAD
     Dosage: 125 MG, QD
     Route: 065
     Dates: start: 20150101, end: 201601
  2. EXJADE [Suspect]
     Active Substance: DEFERASIROX
     Dosage: 125 MG, QD
     Route: 065
     Dates: start: 20160229

REACTIONS (2)
  - Cerebral ischaemia [Recovered/Resolved]
  - Serum ferritin increased [Not Recovered/Not Resolved]

NARRATIVE: CASE EVENT DATE: 201602
